FAERS Safety Report 15861420 (Version 1)
Quarter: 2019Q1

REPORT INFORMATION
  Report Type: Spontaneous
  Country: US (occurrence: US)
  Receive Date: 20190124
  Receipt Date: 20190124
  Transmission Date: 20190417
  Serious: No
  Sender: FDA-Public Use
  Company Number: PHEH2019US000909

PATIENT
  Sex: Male

DRUGS (2)
  1. CLOFAZIMINE [Suspect]
     Active Substance: CLOFAZIMINE
     Indication: MYCOBACTERIAL INFECTION
  2. CLOFAZIMINE [Suspect]
     Active Substance: CLOFAZIMINE
     Indication: DRUG RESISTANCE
     Dosage: 100 MG, QD
     Route: 048
     Dates: start: 20180807, end: 20181031

REACTIONS (1)
  - Skin discolouration [Recovered/Resolved]

NARRATIVE: CASE EVENT DATE: 20180807
